FAERS Safety Report 6210330-9 (Version None)
Quarter: 2009Q2

REPORT INFORMATION
  Report Type: 
  Country: None (occurrence: None)
  Receive Date: 20090529
  Receipt Date: 20090529
  Transmission Date: 20091009
  Serious: Yes (Other)
  Sender: FDA-Public Use
  Company Number: None

PATIENT
  Sex: Female
  Weight: 55.7924 kg

DRUGS (2)
  1. ACTIQ [Suspect]
     Indication: PAIN
     Dates: start: 20070401, end: 20070430
  2. ACTIQ [Suspect]
     Indication: PORPHYRIA ACUTE
     Dates: start: 20070401, end: 20070430

REACTIONS (1)
  - APHTHOUS STOMATITIS [None]
